FAERS Safety Report 9084076 (Version 1)
Quarter: 2013Q1

REPORT INFORMATION
  Report Type: Spontaneous
  Country: US (occurrence: US)
  Receive Date: 20130131
  Receipt Date: 20130131
  Transmission Date: 20140127
  Serious: No
  Sender: FDA-Public Use
  Company Number: US-ABBOTT-12P-163-0989493-00

PATIENT
  Sex: Female
  Weight: 45.85 kg

DRUGS (3)
  1. HUMIRA [Suspect]
     Indication: CROHN^S DISEASE
     Dates: start: 200902, end: 20120920
  2. HUMIRA [Suspect]
     Dates: start: 20120920
  3. AZOR [Concomitant]
     Indication: HYPERTENSION

REACTIONS (3)
  - Fistula [Recovered/Resolved]
  - Injection site pain [Not Recovered/Not Resolved]
  - Fistula [Not Recovered/Not Resolved]
